FAERS Safety Report 17810371 (Version 2)
Quarter: 2020Q2

REPORT INFORMATION
  Report Type: Report from Study
  Country: None (occurrence: US)
  Receive Date: 20200520
  Receipt Date: 20200623
  Transmission Date: 20200714
  Serious: Yes (Other)
  Sender: FDA-Public Use
  Company Number: US-ABBVIE-20K-163-3368924-00

PATIENT
  Sex: Female
  Weight: 97.61 kg

DRUGS (2)
  1. HUMIRA [Suspect]
     Active Substance: ADALIMUMAB
     Indication: PSORIATIC ARTHROPATHY
     Route: 058
     Dates: start: 2012
  2. KETOROLAC [Concomitant]
     Active Substance: KETOROLAC TROMETHAMINE
     Indication: PAIN

REACTIONS (6)
  - Diabetes mellitus [Not Recovered/Not Resolved]
  - Eye infection [Not Recovered/Not Resolved]
  - Blindness [Unknown]
  - Diverticulitis [Recovered/Resolved]
  - Pain [Unknown]
  - Influenza like illness [Unknown]

NARRATIVE: CASE EVENT DATE: 2018
